FAERS Safety Report 4584752-6 (Version None)
Quarter: 2005Q1

REPORT INFORMATION
  Report Type: 
  Country: None (occurrence: None)
  Receive Date: 20050215
  Receipt Date: 20050211
  Transmission Date: 20050727
  Serious: Yes (Other)
  Sender: FDA-Public Use
  Company Number: 004135

PATIENT
  Sex: Female

DRUGS (9)
  1. MEDROXYPROGESTERONE ACETATE [Suspect]
     Dates: start: 19900101, end: 20000201
  2. PROVERA [Suspect]
     Dates: start: 19900101, end: 20000201
  3. ESTRADIOL [Suspect]
     Dates: start: 19900101, end: 20000201
  4. ESTRACE [Suspect]
     Dates: start: 19900101, end: 20000201
  5. PREMARIN [Suspect]
     Dates: start: 19900101, end: 20000201
  6. AYGESTIN [Suspect]
     Dates: start: 19900101, end: 20000201
  7. CYCRIN [Suspect]
     Dates: start: 19900101, end: 20000201
  8. PROGESTERONE [Suspect]
     Dates: start: 19900101, end: 20000201
  9. ESTRATAB [Suspect]
     Dates: start: 19900101, end: 20000201

REACTIONS (1)
  - BREAST CANCER FEMALE [None]
